FAERS Safety Report 7538433-7 (Version None)
Quarter: 2011Q2

REPORT INFORMATION
  Report Type: 
  Country: None (occurrence: None)
  Receive Date: 20110609
  Receipt Date: 20070615
  Transmission Date: 20111010
  Serious: Yes (Other)
  Sender: FDA-Public Use
  Company Number: CA-GENENTECH-319880

PATIENT
  Sex: Female
  Weight: 94 kg

DRUGS (6)
  1. VENTOLIN HFA [Concomitant]
     Indication: PRODUCT USED FOR UNKNOWN INDICATION
  2. COMBIVENT [Concomitant]
     Indication: PRODUCT USED FOR UNKNOWN INDICATION
  3. SINGULAIR [Concomitant]
     Indication: PRODUCT USED FOR UNKNOWN INDICATION
  4. XOLAIR [Suspect]
     Indication: ASTHMA
     Dosage: 375 MG, Q2W
     Route: 058
     Dates: start: 20060418
  5. ADVAIR DISKUS 100/50 [Concomitant]
     Indication: PRODUCT USED FOR UNKNOWN INDICATION
  6. FLONASE [Concomitant]
     Indication: PRODUCT USED FOR UNKNOWN INDICATION

REACTIONS (14)
  - UPPER-AIRWAY COUGH SYNDROME [None]
  - HYPERHIDROSIS [None]
  - FUNGAL INFECTION [None]
  - ARTHRITIS [None]
  - PAIN [None]
  - FIBROMYALGIA [None]
  - BRONCHITIS [None]
  - DYSPNOEA [None]
  - SINUSITIS [None]
  - BLOOD PRESSURE INCREASED [None]
  - ASTHMATIC CRISIS [None]
  - INCREASED UPPER AIRWAY SECRETION [None]
  - DIARRHOEA [None]
  - DYSPHONIA [None]
